FAERS Safety Report 5075784-2 (Version None)
Quarter: 2006Q3

REPORT INFORMATION
  Report Type: 
  Country: None (occurrence: None)
  Receive Date: 20060807
  Receipt Date: 20060807
  Transmission Date: 20061208
  Serious: Yes (Hospitalization)
  Sender: FDA-Public Use
  Company Number: None

PATIENT
  Age: 56 Year
  Sex: Male
  Weight: 60.9 kg

DRUGS (2)
  1. GENGRAF [Suspect]
     Indication: LIVER TRANSPLANT
     Dosage: 125MG  BID  ORAL
     Route: 048
     Dates: start: 20050731, end: 20050908
  2. GENGRAF [Suspect]

REACTIONS (4)
  - HALLUCINATION, VISUAL [None]
  - RESTLESSNESS [None]
  - THERAPY CESSATION [None]
  - TREMOR [None]
